FAERS Safety Report 9474246 (Version 1)
Quarter: 2013Q3

REPORT INFORMATION
  Report Type: Other
  Country: FR (occurrence: FR)
  Receive Date: 20130823
  Receipt Date: 20130823
  Transmission Date: 20140515
  Serious: Yes (Life-Threatening)
  Sender: FDA-Public Use
  Company Number: FR-BRISTOL-MYERS SQUIBB COMPANY-19189364

PATIENT
  Age: 59 Year
  Sex: Female

DRUGS (5)
  1. PACLITAXEL [Suspect]
     Indication: OVARIAN CANCER RECURRENT
  2. CARBOPLATIN [Suspect]
     Indication: OVARIAN CANCER RECURRENT
  3. BEVACIZUMAB [Suspect]
     Indication: OVARIAN CANCER RECURRENT
  4. DOXORUBICIN [Suspect]
     Indication: OVARIAN CANCER RECURRENT
  5. CYCLOPHOSPHAMIDE [Suspect]
     Indication: OVARIAN CANCER RECURRENT

REACTIONS (2)
  - Cardiac failure acute [Unknown]
  - Renal failure acute [Unknown]
